FAERS Safety Report 20711174 (Version 1)
Quarter: 2022Q2

REPORT INFORMATION
  Report Type: Report from Study
  Country: TH (occurrence: TH)
  Receive Date: 20220414
  Receipt Date: 20220414
  Transmission Date: 20220721
  Serious: Yes (Death, Other)
  Sender: FDA-Public Use
  Company Number: TH-JNJFOC-20220425501

PATIENT
  Age: 75 Year

DRUGS (2)
  1. BORTEZOMIB [Suspect]
     Active Substance: BORTEZOMIB
     Indication: Plasma cell myeloma
     Dosage: UNK
     Route: 065
     Dates: start: 20211011, end: 20211203
  2. DARZALEX [Suspect]
     Active Substance: DARATUMUMAB
     Indication: Plasma cell myeloma
     Dosage: UNK
     Route: 065
     Dates: start: 20211011, end: 20211203

REACTIONS (1)
  - Death [Fatal]

NARRATIVE: CASE EVENT DATE: 20220113
